FAERS Safety Report 6234042-0 (Version None)
Quarter: 2009Q2

REPORT INFORMATION
  Report Type: 
  Country: None (occurrence: None)
  Receive Date: 20090618
  Receipt Date: 20090608
  Transmission Date: 20091009
  Serious: Yes (Other)
  Sender: FDA-Public Use
  Company Number: PHEH2009US03180

PATIENT
  Sex: Female

DRUGS (3)
  1. RECLAST [Suspect]
     Dosage: UNK
     Dates: start: 20090126, end: 20090126
  2. FOSAMAX [Concomitant]
  3. LEVOTHROID [Concomitant]

REACTIONS (3)
  - ALOPECIA [None]
  - DRUG ERUPTION [None]
  - SEBORRHOEIC DERMATITIS [None]
